FAERS Safety Report 9250862 (Version 2)
Quarter: 2013Q3

REPORT INFORMATION
  Report Type: Report from Study
  Country: JP (occurrence: JP)
  Receive Date: 20130424
  Receipt Date: 20130805
  Transmission Date: 20140515
  Serious: Yes (Death, Other)
  Sender: FDA-Public Use
  Company Number: PHHY2013JP039537

PATIENT
  Age: 87 Year
  Sex: Male
  Weight: 66 kg

DRUGS (8)
  1. AFINITOR [Suspect]
     Indication: METASTATIC RENAL CELL CARCINOMA
     Dosage: 10 MG, DAILY
     Route: 048
     Dates: start: 20120926, end: 20121026
  2. LYRICA [Concomitant]
     Indication: METASTATIC RENAL CELL CARCINOMA
     Dosage: 150 MG
     Route: 048
     Dates: start: 20121010, end: 20121206
  3. WARFARIN [Concomitant]
     Indication: PULMONARY ARTERY THROMBOSIS
     Dosage: 2.5 MG
     Route: 048
     Dates: start: 20111201
  4. WARFARIN [Concomitant]
     Dosage: 1.5 MG
     Route: 048
  5. WARFARIN [Concomitant]
     Dosage: 0.5 MG
     Route: 048
     Dates: end: 20130121
  6. BAKTAR [Concomitant]
     Indication: PROPHYLAXIS
     Dosage: 1 DF
     Route: 048
     Dates: start: 20121026, end: 20130131
  7. PARIET [Concomitant]
     Indication: PROPHYLAXIS
     Dosage: 10 MG
     Dates: start: 20121026, end: 20121102
  8. CRAVIT [Concomitant]
     Indication: PROPHYLAXIS
     Dosage: 250 MG
     Route: 048
     Dates: start: 20121026, end: 20121102

REACTIONS (3)
  - Metastatic renal cell carcinoma [Fatal]
  - Malignant neoplasm progression [Fatal]
  - C-reactive protein increased [Unknown]
